FAERS Safety Report 6506733-5 (Version None)
Quarter: 2009Q4

REPORT INFORMATION
  Report Type: 
  Country: None (occurrence: None)
  Receive Date: 20091221
  Receipt Date: 20091210
  Transmission Date: 20100525
  Serious: Yes (Other)
  Sender: FDA-Public Use
  Company Number: US-WYE-H12339809

PATIENT
  Sex: Female
  Weight: 86.26 kg

DRUGS (3)
  1. DESVENLAFAXINE SUCCINATE MONOHYDRATE [Suspect]
     Indication: MAJOR DEPRESSION
     Route: 048
     Dates: start: 20090924, end: 20091120
  2. EXCEDRIN (MIGRAINE) [Concomitant]
     Indication: ARTHRALGIA
     Dosage: UNKNOWN
     Dates: start: 20090912
  3. ADVIL [Concomitant]
     Indication: HEADACHE
     Dosage: UNKNOWN
     Dates: start: 19980101

REACTIONS (2)
  - ABORTION MISSED [None]
  - DRUG EXPOSURE DURING PREGNANCY [None]
